FAERS Safety Report 18584738 (Version 1)
Quarter: 2020Q4

REPORT INFORMATION
  Report Type: Spontaneous
  Country: US (occurrence: US)
  Receive Date: 20201203
  Receipt Date: 20201203
  Transmission Date: 20210114
  Serious: No
  Sender: FDA-Public Use
  Company Number: None

PATIENT
  Age: 75 Year
  Sex: Female
  Weight: 74.25 kg

DRUGS (14)
  1. REGENECARE HA [Suspect]
     Active Substance: LIDOCAINE HYDROCHLORIDE
     Indication: PRURITUS
     Dosage: ?          OTHER STRENGTH:2%;?
     Route: 061
  2. ADVAIR HFA [Concomitant]
     Active Substance: FLUTICASONE PROPIONATE\SALMETEROL XINAFOATE
  3. REGENECARE HA [Suspect]
     Active Substance: LIDOCAINE HYDROCHLORIDE
     Indication: ERYTHEMA
     Dosage: ?          OTHER STRENGTH:2%;?
     Route: 061
  4. SIMVASTATINE [Concomitant]
     Active Substance: SIMVASTATIN
  5. WELLBUTRIN [Concomitant]
     Active Substance: BUPROPION HYDROCHLORIDE
  6. HYCHOCHLOROTHAZIDE [Concomitant]
  7. PROAIR HFA [Concomitant]
     Active Substance: ALBUTEROL SULFATE
  8. SINGULAIR [Concomitant]
     Active Substance: MONTELUKAST SODIUM
  9. LEXAPRO [Concomitant]
     Active Substance: ESCITALOPRAM OXALATE
  10. KAPIDEX [Concomitant]
     Active Substance: DEXLANSOPRAZOLE
  11. LINZESS [Concomitant]
     Active Substance: LINACLOTIDE
  12. AZELASTINE. [Concomitant]
     Active Substance: AZELASTINE HYDROCHLORIDE
  13. ASPIRIN. [Concomitant]
     Active Substance: ASPIRIN
  14. VIT D [Concomitant]
     Active Substance: VITAMIN D NOS

REACTIONS (2)
  - Paraesthesia [None]
  - Erythema [None]
